FAERS Safety Report 6676863-6 (Version None)
Quarter: 2010Q2

REPORT INFORMATION
  Report Type: 
  Country: None (occurrence: None)
  Receive Date: 20100412
  Receipt Date: 20100406
  Transmission Date: 20101027
  Serious: Yes (Other)
  Sender: FDA-Public Use
  Company Number: FI-ROCHE-695689

PATIENT
  Sex: Female

DRUGS (10)
  1. RIVATRIL [Suspect]
     Indication: MULTIPLE SCLEROSIS
     Route: 048
     Dates: start: 19920101, end: 20060101
  2. RIVATRIL [Interacting]
     Dosage: DOSE REDUCED.
     Route: 048
     Dates: start: 20060101
  3. RIVATRIL [Interacting]
     Dosage: DOSE INCREASED
     Route: 048
     Dates: start: 20060101
  4. TENOX (TEMAZEPAM) [Interacting]
     Indication: SLEEP DISORDER
     Route: 048
     Dates: start: 19920101
  5. TENOX (TEMAZEPAM) [Interacting]
     Dosage: DOSE REDUCED.
     Route: 048
  6. PANACOD [Interacting]
     Indication: DRUG USE FOR UNKNOWN INDICATION
     Route: 048
  7. LAMICTAL [Interacting]
     Indication: DRUG USE FOR UNKNOWN INDICATION
     Route: 048
  8. LAMICTAL [Interacting]
     Route: 048
  9. LAMICTAL [Interacting]
     Route: 048
  10. CORTISONE [Concomitant]
     Dosage: DRUG NAME REPORTED AS UNDEFINED CORTISONE PULSE TREATMENT

REACTIONS (13)
  - ATAXIA [None]
  - CATARACT [None]
  - DISTURBANCE IN ATTENTION [None]
  - DRUG DEPENDENCE [None]
  - DRUG INTERACTION [None]
  - IRRITABILITY [None]
  - LIVER INJURY [None]
  - MEMORY IMPAIRMENT [None]
  - NYSTAGMUS [None]
  - SLEEP DISORDER [None]
  - SUICIDAL IDEATION [None]
  - THERMOANAESTHESIA [None]
  - VISUAL IMPAIRMENT [None]
